FAERS Safety Report 5742017-0 (Version None)
Quarter: 2008Q2

REPORT INFORMATION
  Report Type: 
  Country: None (occurrence: None)
  Receive Date: 20080519
  Receipt Date: 20080509
  Transmission Date: 20081010
  Serious: Yes (Hospitalization)
  Sender: FDA-Public Use
  Company Number: ES-MERCK-0805ESP00017

PATIENT
  Age: 38 Year
  Sex: Female

DRUGS (9)
  1. ISENTRESS [Suspect]
     Indication: HIV INFECTION CDC CATEGORY C3
     Route: 065
     Dates: start: 20080410, end: 20080417
  2. ISENTRESS [Suspect]
     Route: 065
     Dates: start: 20080425
  3. TRUVADA [Concomitant]
     Indication: HIV INFECTION CDC CATEGORY C3
     Route: 065
     Dates: start: 20080410, end: 20080417
  4. T-20 [Concomitant]
     Indication: HIV INFECTION CDC CATEGORY C3
     Route: 065
     Dates: start: 20080410, end: 20080417
  5. T-20 [Concomitant]
     Route: 065
     Dates: start: 20080425
  6. DARUNAVIR AND RITONAVIR [Suspect]
     Indication: HIV INFECTION CDC CATEGORY C3
     Route: 065
     Dates: start: 20080410, end: 20080417
  7. PENTAMIDINE ISETHIONATE [Concomitant]
     Route: 065
     Dates: end: 20080417
  8. LAMIVUDINE [Concomitant]
     Indication: HIV INFECTION CDC CATEGORY C3
     Route: 065
     Dates: start: 20040425
  9. RITONAVIR AND TIPRANAVIR [Concomitant]
     Indication: HIV INFECTION CDC CATEGORY C3
     Route: 065
     Dates: start: 20080425

REACTIONS (5)
  - HYPERSENSITIVITY [None]
  - MALAISE [None]
  - METABOLIC ACIDOSIS [None]
  - PYREXIA [None]
  - RASH GENERALISED [None]
